FAERS Safety Report 14899810 (Version 1)
Quarter: 2018Q2

REPORT INFORMATION
  Report Type: Spontaneous
  Country: US (occurrence: US)
  Receive Date: 20180427
  Receipt Date: 20180427
  Transmission Date: 20180711
  Serious: Yes (Other)
  Sender: FDA-Public Use
  Company Number: None

PATIENT
  Age: 60 Year
  Sex: Female
  Weight: 100.8 kg

DRUGS (1)
  1. REMICADE [Suspect]
     Active Substance: INFLIXIMAB
     Indication: COLITIS ULCERATIVE
     Dosage: ?          OTHER FREQUENCY:EVERY 8 WEEKS;?
     Route: 041
     Dates: start: 20180125, end: 20180308

REACTIONS (7)
  - Infusion related reaction [None]
  - Body temperature increased [None]
  - Blood pressure increased [None]
  - Chills [None]
  - Arthralgia [None]
  - Heart rate increased [None]
  - Therapy non-responder [None]

NARRATIVE: CASE EVENT DATE: 20180308
